FAERS Safety Report 22280104 (Version 1)
Quarter: 2023Q2

REPORT INFORMATION
  Report Type: Spontaneous
  Country: US (occurrence: US)
  Receive Date: 20230503
  Receipt Date: 20230503
  Transmission Date: 20230721
  Serious: No
  Sender: FDA-Public Use
  Company Number: US-BAYER-2023A055564

PATIENT
  Sex: Male

DRUGS (2)
  1. KERENDIA [Interacting]
     Active Substance: FINERENONE
  2. KETOCONAZOLE [Interacting]
     Active Substance: KETOCONAZOLE
     Route: 061

REACTIONS (1)
  - Labelled drug-drug interaction medication error [None]
